FAERS Safety Report 20766914 (Version 1)
Quarter: 2022Q2

REPORT INFORMATION
  Report Type: Spontaneous
  Country: NL (occurrence: NL)
  Receive Date: 20220429
  Receipt Date: 20220429
  Transmission Date: 20220720
  Serious: Yes (Life-Threatening, Hospitalization, Other)
  Sender: FDA-Public Use
  Company Number: NL-MLMSERVICE-20220329-3455939-1

PATIENT
  Age: 71 Year
  Sex: Male

DRUGS (9)
  1. AZITHROMYCIN [Interacting]
     Active Substance: AZITHROMYCIN
     Indication: Mycobacterial infection
     Dosage: 6.25 MILLIGRAM/KILOGRAM, ONCE A DAY
     Route: 048
  2. MYCOPHENOLIC ACID [Interacting]
     Active Substance: MYCOPHENOLIC ACID
     Indication: Immunosuppressant drug therapy
     Dosage: 500 MILLIGRAM, TWO TIMES A DAY
     Route: 065
     Dates: end: 2020
  3. MYCOPHENOLIC ACID [Interacting]
     Active Substance: MYCOPHENOLIC ACID
     Indication: Prophylaxis against graft versus host disease
  4. PREDNISOLONE [Interacting]
     Active Substance: PREDNISOLONE
     Indication: Immunosuppressant drug therapy
     Dosage: 5 MILLIGRAM, ONCE A DAY
     Route: 065
  5. PREDNISOLONE [Interacting]
     Active Substance: PREDNISOLONE
     Indication: Prophylaxis against graft versus host disease
  6. ETHAMBUTOL [Suspect]
     Active Substance: ETHAMBUTOL HYDROCHLORIDE
     Indication: Mycobacterial infection
     Dosage: 15 MILLIGRAM/KILOGRAM, ONCE A DAY
     Route: 065
  7. RIFAMPIN [Interacting]
     Active Substance: RIFAMPIN
     Indication: Mycobacterial infection
     Dosage: 7.5 MILLIGRAM/KILOGRAM, ONCE A DAY
     Route: 065
  8. TACROLIMUS [Interacting]
     Active Substance: TACROLIMUS
     Indication: Immunosuppressant drug therapy
     Dosage: 1 MILLIGRAM, TWO TIMES A DAY
     Route: 065
  9. TACROLIMUS [Interacting]
     Active Substance: TACROLIMUS
     Indication: Prophylaxis against graft versus host disease

REACTIONS (5)
  - Atypical mycobacterial infection [Not Recovered/Not Resolved]
  - Renal failure [Unknown]
  - Drug interaction [Unknown]
  - Hepatic function abnormal [Unknown]
  - Mycobacterial infection [Not Recovered/Not Resolved]
